FAERS Safety Report 19988406 (Version 1)
Quarter: 2021Q4

REPORT INFORMATION
  Report Type: Spontaneous
  Country: US (occurrence: US)
  Receive Date: 20211022
  Receipt Date: 20211022
  Transmission Date: 20220303
  Serious: Yes (Other)
  Sender: FDA-Public Use
  Company Number: US-BAXTER-2021BAX032695

PATIENT
  Age: 25 Year
  Sex: Female

DRUGS (5)
  1. DOXIL [Suspect]
     Active Substance: DOXORUBICIN HYDROCHLORIDE
     Indication: Synovial sarcoma
     Dosage: DAY 1, PREPARTUM
     Route: 065
  2. DOXIL [Suspect]
     Active Substance: DOXORUBICIN HYDROCHLORIDE
     Dosage: (25 MG/M2/DAY, DAY 1-3), POSTPARTUM (6 CYCLES IN TOTAL)
     Route: 065
  3. IFOSFAMIDE [Suspect]
     Active Substance: IFOSFAMIDE
     Indication: Synovial sarcoma
     Dosage: 2.5 G/M2/DAY, DAYS 1-2, PREPARTUM
     Route: 065
  4. IFOSFAMIDE [Suspect]
     Active Substance: IFOSFAMIDE
     Dosage: 2.5 G/M2/DAY, DAYS 1-4, POSTPARTUM, 6 CYCLES IN TOTAL
     Route: 065
  5. MESNA [Concomitant]
     Active Substance: MESNA
     Indication: Prophylaxis
     Route: 065

REACTIONS (2)
  - Amniotic fluid index decreased [Unknown]
  - Exposure during pregnancy [Unknown]
